FAERS Safety Report 5941662-7 (Version None)
Quarter: 2008Q4

REPORT INFORMATION
  Report Type: 
  Country: None (occurrence: None)
  Receive Date: 20081104
  Receipt Date: 20081104
  Transmission Date: 20090506
  Serious: Yes (Other)
  Sender: FDA-Public Use
  Company Number: None

PATIENT
  Sex: Male
  Weight: 112.4921 kg

DRUGS (2)
  1. QUETIAPINE FUMARATE [Suspect]
     Indication: BIPOLAR DISORDER
     Dosage: 25MG TAB 1 TAB AT BEDTIME
  2. ABILIFY [Suspect]
     Indication: BIPOLAR DISORDER
     Dosage: 15 MG TAB 1 A DAY

REACTIONS (5)
  - CONFUSIONAL STATE [None]
  - DISORIENTATION [None]
  - FEELING ABNORMAL [None]
  - MEMORY IMPAIRMENT [None]
  - THINKING ABNORMAL [None]
